FAERS Safety Report 6927792-1 (Version None)
Quarter: 2010Q3

REPORT INFORMATION
  Report Type: 
  Country: None (occurrence: None)
  Receive Date: 20100817
  Receipt Date: 20100611
  Transmission Date: 20110219
  Serious: Yes (Death, Other)
  Sender: FDA-Public Use
  Company Number: US-BAXTER-2009BH001161

PATIENT
  Age: 54 Year
  Sex: Male
  Weight: 173 kg

DRUGS (22)
  1. HEPARIN SODIUM INJECTION [Suspect]
     Indication: THROMBOSIS PROPHYLAXIS
     Route: 065
     Dates: start: 20070701
  2. HEPARIN SODIUM INJECTION [Suspect]
     Route: 010
     Dates: start: 20071101, end: 20080101
  3. HEPARIN SODIUM INJECTION [Suspect]
     Route: 010
     Dates: start: 20080123, end: 20080123
  4. AMITRIPTYLINE HYDROCHLORIDE [Concomitant]
     Indication: PRODUCT USED FOR UNKNOWN INDICATION
     Route: 048
  5. GLIPIZIDE [Concomitant]
     Indication: PRODUCT USED FOR UNKNOWN INDICATION
     Route: 048
     Dates: start: 20080105, end: 20080124
  6. TRICOR [Concomitant]
     Indication: PRODUCT USED FOR UNKNOWN INDICATION
     Route: 048
     Dates: start: 20080105, end: 20080124
  7. ALBUTEROL SULFATE [Concomitant]
     Indication: PRODUCT USED FOR UNKNOWN INDICATION
     Route: 055
  8. ULTRAM [Concomitant]
     Indication: PRODUCT USED FOR UNKNOWN INDICATION
     Route: 048
     Dates: start: 20080105, end: 20080124
  9. COLACE [Concomitant]
     Indication: PRODUCT USED FOR UNKNOWN INDICATION
     Route: 065
     Dates: start: 20080105, end: 20080124
  10. SIMVASTATIN [Concomitant]
     Indication: PRODUCT USED FOR UNKNOWN INDICATION
     Route: 065
     Dates: start: 20080105, end: 20080124
  11. ASPIRIN [Concomitant]
     Indication: PRODUCT USED FOR UNKNOWN INDICATION
     Route: 048
     Dates: start: 20080105, end: 20080124
  12. PLETAL [Concomitant]
     Indication: PRODUCT USED FOR UNKNOWN INDICATION
     Route: 065
     Dates: start: 20080105, end: 20080124
  13. SYNTHROID [Concomitant]
     Indication: PRODUCT USED FOR UNKNOWN INDICATION
     Route: 065
     Dates: start: 20080105, end: 20080124
  14. PANTOPRAZOLE [Concomitant]
     Indication: PRODUCT USED FOR UNKNOWN INDICATION
     Route: 065
     Dates: start: 20080105, end: 20080124
  15. XANAX [Concomitant]
     Indication: PRODUCT USED FOR UNKNOWN INDICATION
     Route: 065
     Dates: start: 20080124
  16. LORTAB [Concomitant]
     Indication: PRODUCT USED FOR UNKNOWN INDICATION
     Route: 065
  17. LASIX [Concomitant]
     Indication: PRODUCT USED FOR UNKNOWN INDICATION
     Route: 065
     Dates: start: 20080105, end: 20080124
  18. SYMBICORT [Concomitant]
     Indication: PRODUCT USED FOR UNKNOWN INDICATION
     Route: 055
  19. ASMANEX TWISTHALER [Concomitant]
     Indication: PRODUCT USED FOR UNKNOWN INDICATION
     Route: 055
  20. CELEXA [Concomitant]
     Indication: PRODUCT USED FOR UNKNOWN INDICATION
     Route: 048
     Dates: start: 20080105, end: 20080124
  21. VANCOMYCIN [Concomitant]
     Indication: PRODUCT USED FOR UNKNOWN INDICATION
     Route: 042
  22. HUMULIN 70/30 [Concomitant]
     Indication: PRODUCT USED FOR UNKNOWN INDICATION
     Route: 058
     Dates: start: 20080105, end: 20080124

REACTIONS (31)
  - ABDOMINAL DISCOMFORT [None]
  - ABDOMINAL PAIN [None]
  - ABDOMINAL PAIN UPPER [None]
  - BURNING SENSATION [None]
  - CARDIAC ARREST [None]
  - CHEST PAIN [None]
  - CHILLS [None]
  - DIARRHOEA [None]
  - DIZZINESS [None]
  - DYSPNOEA [None]
  - FLUSHING [None]
  - HEADACHE [None]
  - HYPOTENSION [None]
  - IMPAIRED HEALING [None]
  - LETHARGY [None]
  - LEUKOCYTOSIS [None]
  - LIP SWELLING [None]
  - LOCAL SWELLING [None]
  - NAUSEA [None]
  - OEDEMA MOUTH [None]
  - ORGAN FAILURE [None]
  - OXYGEN SATURATION DECREASED [None]
  - PAIN IN EXTREMITY [None]
  - PARAESTHESIA [None]
  - PHARYNGEAL OEDEMA [None]
  - PRURITUS [None]
  - PYREXIA [None]
  - RESTLESSNESS [None]
  - SEPSIS [None]
  - THIRST [None]
  - VOMITING [None]
